FAERS Safety Report 7401725-6 (Version None)
Quarter: 2011Q1

REPORT INFORMATION
  Report Type: 
  Country: None (occurrence: None)
  Receive Date: 20110329
  Receipt Date: 20110316
  Transmission Date: 20110831
  Serious: Yes (Other)
  Sender: FDA-Public Use
  Company Number: 2011MA002724

PATIENT
  Age: 57 Year
  Sex: Female

DRUGS (2)
  1. CALCICHEW [Concomitant]
  2. SERTRALINE HYDROCHLORIDE [Suspect]
     Dosage: 50 MG;PO
     Route: 048
     Dates: start: 20110214, end: 20110214

REACTIONS (1)
  - CONVULSION [None]
